FAERS Safety Report 25686753 (Version 1)
Quarter: 2025Q3

REPORT INFORMATION
  Report Type: Spontaneous
  Country: MX (occurrence: MX)
  Receive Date: 20250816
  Receipt Date: 20250816
  Transmission Date: 20251021
  Serious: Yes (Other)
  Sender: MSN LABORATORIES PRIVATE LIMITED
  Company Number: MX-MSNLABS-2025MSNLIT02206

PATIENT

DRUGS (3)
  1. SIROLIMUS [Suspect]
     Active Substance: SIROLIMUS
     Indication: Pericardial effusion
     Dosage: 3 MG EVERY 24 H, CORRESPONDING TO AN INITIAL DOSAGE OF 2 MG/M2/DAY
     Route: 064
  2. SIROLIMUS [Suspect]
     Active Substance: SIROLIMUS
     Indication: Rhabdomyoma
     Route: 048
  3. SIROLIMUS [Suspect]
     Active Substance: SIROLIMUS
     Indication: Tuberous sclerosis complex
     Dosage: INCREASED TO 6 MG EVERY 24 H.
     Route: 064

REACTIONS (2)
  - Necrotising enterocolitis neonatal [Recovered/Resolved]
  - Foetal exposure during pregnancy [Unknown]
